FAERS Safety Report 20801499 (Version 3)
Quarter: 2022Q2

REPORT INFORMATION
  Report Type: Spontaneous
  Country: HU (occurrence: HU)
  Receive Date: 20220509
  Receipt Date: 20220629
  Transmission Date: 20220721
  Serious: No
  Sender: FDA-Public Use
  Company Number: HU-BAYER-2022A063566

PATIENT
  Age: 59 Year
  Sex: Female

DRUGS (3)
  1. EYLEA [Suspect]
     Active Substance: AFLIBERCEPT
     Indication: Cystoid macular oedema
     Dosage: OS; SOLUTION FOR INJECTION; (STRENGTH: 40MG/ML)
     Route: 031
     Dates: start: 202011, end: 202011
  2. EYLEA [Suspect]
     Active Substance: AFLIBERCEPT
     Dosage: OD; SOLUTION FOR INJECTION
     Route: 031
     Dates: start: 202101, end: 202101
  3. EYLEA [Suspect]
     Active Substance: AFLIBERCEPT
     Dosage: OS; SOLUTION FOR INJECTION
     Route: 031
     Dates: start: 202105, end: 202105

REACTIONS (1)
  - Off label use [Unknown]

NARRATIVE: CASE EVENT DATE: 20201101
